FAERS Safety Report 26010360 (Version 1)
Quarter: 2025Q4

REPORT INFORMATION
  Report Type: Spontaneous
  Country: US (occurrence: US)
  Receive Date: 20251107
  Receipt Date: 20251107
  Transmission Date: 20260117
  Serious: No
  Sender: CIPLA
  Company Number: US-CIPLA LTD.-2025US13658

PATIENT

DRUGS (1)
  1. LENALIDOMIDE [Suspect]
     Active Substance: LENALIDOMIDE
     Indication: Plasma cell myeloma
     Dosage: 10 MILLIGRAM, QD (FOR 14 DAYS ON, 7 DAYS OFF)
     Route: 048
     Dates: start: 202508

REACTIONS (2)
  - Inappropriate schedule of product administration [Unknown]
  - Rhinorrhoea [Unknown]
